FAERS Safety Report 6469327-6 (Version None)
Quarter: 2009Q4

REPORT INFORMATION
  Report Type: 
  Country: None (occurrence: None)
  Receive Date: 20091203
  Receipt Date: 20091027
  Transmission Date: 20100525
  Serious: Yes (Hospitalization, Other)
  Sender: FDA-Public Use
  Company Number: FI-SANOFI-AVENTIS-200921866GDDC

PATIENT
  Age: 70 Year
  Sex: Female

DRUGS (12)
  1. SOLOSTAR [Suspect]
     Dosage: DOSE AS USED: 2-6 U
  2. APIDRA SOLOSTAR [Suspect]
     Indication: DIABETES MELLITUS
     Route: 058
  3. APIDRA SOLOSTAR [Suspect]
     Route: 058
     Dates: start: 20090701, end: 20090701
  4. SOLOSTAR [Suspect]
  5. LANTUS [Suspect]
     Route: 058
  6. ATENOL [Concomitant]
     Indication: HYPERTENSION
     Route: 048
  7. ANAFRANIL [Concomitant]
     Route: 048
  8. DIFORMIN RETARD [Concomitant]
     Route: 048
  9. CRESTOR [Concomitant]
     Route: 048
  10. PLAVIX [Concomitant]
     Route: 048
  11. SPIRESIS [Concomitant]
     Route: 048
  12. LYRICA [Concomitant]

REACTIONS (1)
  - WRONG DRUG ADMINISTERED [None]
